FAERS Safety Report 5401687-7 (Version None)
Quarter: 2007Q3

REPORT INFORMATION
  Report Type: 
  Country: None (occurrence: None)
  Receive Date: 20070731
  Receipt Date: 20070727
  Transmission Date: 20080115
  Serious: Yes (Death)
  Sender: FDA-Public Use
  Company Number: FR-BRISTOL-MYERS SQUIBB COMPANY-13862206

PATIENT
  Age: 70 Year
  Sex: Male

DRUGS (12)
  1. SINEMET CR [Suspect]
     Route: 048
  2. FLURBIPROFEN [Suspect]
     Dates: start: 20070606, end: 20070717
  3. PAROXETINE [Suspect]
  4. COMTAN [Suspect]
  5. REQUIP [Suspect]
  6. MODOPAR [Suspect]
  7. TAMSULOSIN HCL [Suspect]
  8. IMOVANE [Suspect]
  9. MOTILIUM [Suspect]
  10. PERMIXON [Suspect]
  11. XANAX [Suspect]
     Dates: start: 20070717
  12. PANTOPRAZOLE SODIUM [Suspect]

REACTIONS (1)
  - CEREBRAL HAEMATOMA [None]
